FAERS Safety Report 26210244 (Version 1)
Quarter: 2025Q4

REPORT INFORMATION
  Report Type: Spontaneous
  Country: US (occurrence: US)
  Receive Date: 20251229
  Receipt Date: 20251229
  Transmission Date: 20260117
  Serious: Yes (Death, Other)
  Sender: NOVO NORDISK
  Company Number: US-NOVOPROD-1589628

PATIENT
  Age: 77 Year
  Sex: Male

DRUGS (1)
  1. OZEMPIC [Suspect]
     Active Substance: SEMAGLUTIDE
     Indication: Type 2 diabetes mellitus
     Dosage: 2 MG, QW
     Dates: start: 20230725

REACTIONS (3)
  - Multiple organ dysfunction syndrome [Fatal]
  - Pancreatitis necrotising [Fatal]
  - Duodenal perforation [Fatal]

NARRATIVE: CASE EVENT DATE: 20251208
